FAERS Safety Report 9427193 (Version 1)
Quarter: 2013Q3

REPORT INFORMATION
  Report Type: Report from Study
  Country: US (occurrence: US)
  Receive Date: 20130730
  Receipt Date: 20130730
  Transmission Date: 20140515
  Serious: No
  Sender: FDA-Public Use
  Company Number: US-ABBOTT-12P-163-0976888-00

PATIENT
  Sex: Male

DRUGS (3)
  1. NIASPAN (COATED) [Suspect]
     Dosage: 2000 MG EVERY DAY
     Route: 048
  2. SAMS STRENGTH TRIPLE STRENGTH FISH OIL [Suspect]
     Indication: HIGH DENSITY LIPOPROTEIN DECREASED
     Route: 048
  3. UNSPECIFIED BLOOD THINNER [Concomitant]
     Indication: PRODUCT USED FOR UNKNOWN INDICATION

REACTIONS (3)
  - Flushing [Recovered/Resolved]
  - High density lipoprotein decreased [Unknown]
  - Hypertension [Unknown]
